FAERS Safety Report 20319820 (Version 1)
Quarter: 2022Q1

REPORT INFORMATION
  Report Type: Report from Study
  Country: CA (occurrence: CA)
  Receive Date: 20220111
  Receipt Date: 20220111
  Transmission Date: 20220423
  Serious: Yes (Other)
  Sender: FDA-Public Use
  Company Number: CA-JNJFOC-20220108776

PATIENT
  Age: 2 Year
  Sex: Female
  Weight: 14 kg

DRUGS (1)
  1. STELARA [Suspect]
     Active Substance: USTEKINUMAB
     Indication: Colitis ulcerative
     Route: 058

REACTIONS (1)
  - Haematochezia [Recovering/Resolving]

NARRATIVE: CASE EVENT DATE: 20211209
